FAERS Safety Report 12585516 (Version 2)
Quarter: 2016Q3

REPORT INFORMATION
  Report Type: Spontaneous
  Country: IT (occurrence: IT)
  Receive Date: 20160725
  Receipt Date: 20160822
  Transmission Date: 20161109
  Serious: Yes (Other)
  Sender: FDA-Public Use
  Company Number: IT-BRISTOL-MYERS SQUIBB COMPANY-BMS-2016-057258

PATIENT
  Age: 78 Year
  Sex: Male

DRUGS (3)
  1. NEO FURADANTIN [Suspect]
     Active Substance: NITROFURANTOIN
     Indication: INFECTION
     Dosage: 50 MG, QD
     Route: 048
     Dates: start: 20160701, end: 20160710
  2. COUMADIN [Suspect]
     Active Substance: WARFARIN SODIUM
     Dosage: 20 UNK, UNK
     Route: 048
     Dates: start: 20151209, end: 20160719
  3. COUMADIN [Suspect]
     Active Substance: WARFARIN SODIUM
     Indication: ATRIAL FIBRILLATION
     Dosage: 21.25 MG, QWK
     Route: 048
     Dates: start: 20151205, end: 20160616

REACTIONS (3)
  - Microcytic anaemia [Unknown]
  - Epistaxis [Recovering/Resolving]
  - Transfusion [Unknown]

NARRATIVE: CASE EVENT DATE: 20160311
